FAERS Safety Report 4458255-3 (Version None)
Quarter: 2004Q3

REPORT INFORMATION
  Report Type: 
  Country: None (occurrence: None)
  Receive Date: 20040924
  Receipt Date: 20040915
  Transmission Date: 20050211
  Serious: Yes (Hospitalization)
  Sender: FDA-Public Use
  Company Number: FR-JNJFOC-20040904733

PATIENT
  Age: 69 Year
  Sex: Female

DRUGS (15)
  1. TRAMADOL HCL [Suspect]
     Indication: DRUG USE FOR UNKNOWN INDICATION
     Route: 049
  2. ACETAMINOPHEN W/ CODEINE [Suspect]
     Route: 065
  3. ACETAMINOPHEN W/ CODEINE [Suspect]
     Indication: DRUG USE FOR UNKNOWN INDICATION
     Route: 065
  4. CEFUROXIME AXETIL [Suspect]
     Indication: DRUG USE FOR UNKNOWN INDICATION
     Route: 042
  5. VENOFER [Suspect]
     Indication: DRUG USE FOR UNKNOWN INDICATION
     Route: 042
  6. LOVENOX [Concomitant]
     Route: 058
  7. HYPNOVEL [Concomitant]
  8. SUCCINYLCHOLINE CHLORIDE [Concomitant]
  9. KETAMINE HCL [Concomitant]
  10. CLONIDINE HCL [Concomitant]
  11. MORPHINE [Concomitant]
  12. PROFENID [Concomitant]
  13. NEFOPAM HYDROCHLORIDE [Concomitant]
  14. ZAMUDOL [Concomitant]
  15. ROPIVACAINE [Concomitant]

REACTIONS (4)
  - AGITATION [None]
  - DELIRIUM [None]
  - DRUG INTERACTION [None]
  - HALLUCINATION [None]
